FAERS Safety Report 13182258 (Version 1)
Quarter: 2017Q1

REPORT INFORMATION
  Report Type: Spontaneous
  Country: FR (occurrence: FR)
  Receive Date: 20170203
  Receipt Date: 20170203
  Transmission Date: 20170428
  Serious: Yes (Other)
  Sender: FDA-Public Use
  Company Number: FR-ELI_LILLY_AND_COMPANY-FR201702000087

PATIENT
  Age: 70 Year
  Sex: Female

DRUGS (3)
  1. SOLU-MEDROL [Concomitant]
     Active Substance: METHYLPREDNISOLONE SODIUM SUCCINATE
     Indication: PREMEDICATION
     Dosage: 80 MG, UNKNOWN
     Route: 065
     Dates: start: 20170104
  2. POLARAMINE [Concomitant]
     Active Substance: DEXCHLORPHENIRAMINE MALEATE
     Indication: PREMEDICATION
     Dosage: 1 DF, UNKNOWN
     Route: 065
     Dates: start: 20170104
  3. ERBITUX [Suspect]
     Active Substance: CETUXIMAB
     Indication: RECTAL CANCER METASTATIC
     Dosage: 875 MG, UNKNOWN
     Route: 042
     Dates: start: 20170104, end: 20170104

REACTIONS (4)
  - Mydriasis [Unknown]
  - Syncope [Unknown]
  - Hypotension [Unknown]
  - Urticaria [Unknown]

NARRATIVE: CASE EVENT DATE: 20170104
